FAERS Safety Report 19293252 (Version 1)
Quarter: 2021Q2

REPORT INFORMATION
  Report Type: Spontaneous
  Country: CN (occurrence: CN)
  Receive Date: 20210524
  Receipt Date: 20210524
  Transmission Date: 20210717
  Serious: Yes (Other)
  Sender: FDA-Public Use
  Company Number: CN-JNJFOC-20210526681

PATIENT
  Age: 69 Year
  Sex: Female
  Weight: 37.5 kg

DRUGS (3)
  1. GINKGO BILOBA [Suspect]
     Active Substance: GINKGO
     Indication: INTENTIONAL OVERDOSE
     Dosage: DOSE: 8 TABLET
     Route: 048
     Dates: start: 20210426, end: 20210426
  2. ZOPICLONE [Suspect]
     Active Substance: ZOPICLONE
     Indication: INTENTIONAL OVERDOSE
     Dosage: DOSE 1 TABLET
     Route: 048
     Dates: start: 20210426, end: 20210426
  3. RISPERDAL [Suspect]
     Active Substance: RISPERIDONE
     Indication: INTENTIONAL OVERDOSE
     Dosage: DOSE: 3 TABLET
     Route: 048
     Dates: start: 20210426, end: 20210426

REACTIONS (3)
  - Hypertensive crisis [Recovering/Resolving]
  - Coma [Recovering/Resolving]
  - Pyrexia [Recovering/Resolving]

NARRATIVE: CASE EVENT DATE: 20210426
